FAERS Safety Report 10094731 (Version 1)
Quarter: 2014Q2

REPORT INFORMATION
  Report Type: Report from Study
  Country: US (occurrence: US)
  Receive Date: 20140422
  Receipt Date: 20140422
  Transmission Date: 20141212
  Serious: Yes (Hospitalization, Other)
  Sender: FDA-Public Use
  Company Number: PHEH2014US007465

PATIENT
  Sex: Female

DRUGS (18)
  1. AFINITOR [Suspect]
     Dosage: 10 MG, QD
     Route: 048
  2. MULTI-VIT [Concomitant]
     Dosage: UNK
  3. COLACE [Concomitant]
     Dosage: UNK
     Route: 048
  4. DITROPAN [Concomitant]
     Dosage: 10 MG, QD
  5. NORVASC [Concomitant]
     Indication: HYPERTENSION
     Dosage: 5 MG, QD
  6. KEPPRA [Concomitant]
     Indication: CONVULSION
     Dosage: 1000 MG, BID
  7. ADVAIR DISKUS [Concomitant]
     Indication: CHRONIC OBSTRUCTIVE PULMONARY DISEASE
     Route: 055
  8. PROTONIX [Concomitant]
     Indication: GASTROOESOPHAGEAL REFLUX DISEASE
     Dosage: 20 MG, BID
  9. ZOCOR [Concomitant]
     Indication: HYPERLIPIDAEMIA
     Dosage: 20 MG, EVERY EVENING
     Route: 048
  10. DULCOLAX [Concomitant]
     Indication: CONSTIPATION
     Route: 054
  11. MIRALAX [Concomitant]
     Dosage: 17 G, AS NEEDED
  12. TYLENOL W/CODEINE NO. 3 [Concomitant]
     Indication: PAIN
     Route: 048
  13. LIDOCAINE [Concomitant]
     Indication: ARTHRALGIA
     Route: 061
  14. TYLENOL [Concomitant]
     Indication: PAIN
     Dosage: 500 MG, TID
     Route: 048
  15. ZOFRAN [Concomitant]
     Indication: NAUSEA
     Dosage: UNK
     Route: 048
  16. MI-ACID [Concomitant]
     Indication: ABDOMINAL DISCOMFORT
  17. BACLOFEN [Concomitant]
     Indication: MUSCLE SPASTICITY
     Dosage: 10 MG, TID
  18. DUONEB [Concomitant]
     Indication: DYSPNOEA
     Route: 055

REACTIONS (2)
  - Arthralgia [Unknown]
  - Road traffic accident [Unknown]
